FAERS Safety Report 9636108 (Version 1)
Quarter: 2013Q4

REPORT INFORMATION
  Report Type: Spontaneous
  Country: US (occurrence: US)
  Receive Date: 20131021
  Receipt Date: 20131021
  Transmission Date: 20140711
  Serious: Yes (Hospitalization, Other)
  Sender: FDA-Public Use
  Company Number: US-AMGEN-USASP2013072817

PATIENT
  Age: 67 Year
  Sex: Female
  Weight: 68.03 kg

DRUGS (8)
  1. PROCRIT [Suspect]
     Indication: MYELODYSPLASTIC SYNDROME
     Dosage: 40000 IU, EVERY TWO WEEKS
     Route: 058
     Dates: start: 201001
  2. BACTRIM [Suspect]
     Indication: STAPHYLOCOCCAL INFECTION
     Dosage: UNK
     Route: 065
     Dates: start: 2013
  3. KEFLEX /00145501/ [Suspect]
     Indication: STAPHYLOCOCCAL INFECTION
     Dosage: UNK
     Route: 065
     Dates: start: 2013
  4. CEFADROXIL [Suspect]
     Indication: STAPHYLOCOCCAL INFECTION
     Dosage: UNK
     Route: 065
     Dates: start: 2013
  5. FOLIC ACID [Concomitant]
     Dosage: UNK
  6. VICODIN [Concomitant]
     Indication: ANALGESIC THERAPY
     Dosage: 10/325 MG, UNK
     Route: 048
     Dates: start: 201306
  7. HUMALOG [Concomitant]
     Indication: DIABETES MELLITUS
     Dosage: UNK
  8. LANTUS [Concomitant]
     Indication: DIABETES MELLITUS
     Dosage: UNK

REACTIONS (5)
  - Staphylococcal osteomyelitis [Not Recovered/Not Resolved]
  - Bone erosion [Unknown]
  - Diarrhoea [Not Recovered/Not Resolved]
  - Dehydration [Unknown]
  - Haemoglobin decreased [Unknown]
